FAERS Safety Report 6929139-3 (Version None)
Quarter: 2010Q3

REPORT INFORMATION
  Report Type: 
  Country: None (occurrence: None)
  Receive Date: 20100813
  Receipt Date: 20100729
  Transmission Date: 20110219
  Serious: Yes (Life-Threatening, Hospitalization)
  Sender: FDA-Public Use
  Company Number: 7005563

PATIENT
  Age: 34 Year
  Sex: Female

DRUGS (1)
  1. REBIF [Suspect]
     Indication: PRODUCT USED FOR UNKNOWN INDICATION
     Dosage: 44 MCG, 3 IN 1 WK, SUBCUTANEOUS
     Route: 058
     Dates: start: 20100315

REACTIONS (7)
  - COMA [None]
  - GASTRIC DISORDER [None]
  - PERONEAL NERVE PALSY [None]
  - STREPTOCOCCAL INFECTION [None]
  - UROSEPSIS [None]
  - VOMITING [None]
  - WEIGHT DECREASED [None]
